FAERS Safety Report 19156376 (Version 5)
Quarter: 2021Q2

REPORT INFORMATION
  Report Type: Spontaneous
  Country: US (occurrence: US)
  Receive Date: 20210419
  Receipt Date: 20210628
  Transmission Date: 20210717
  Serious: No
  Sender: FDA-Public Use
  Company Number: US-B.I. PHARMACEUTICALS,INC./RIDGEFIELD-2021-BI-096642

PATIENT
  Age: 65 Year
  Sex: Female

DRUGS (4)
  1. CLARITIN [Concomitant]
     Active Substance: LORATADINE
     Indication: HYPERSENSITIVITY
     Route: 065
  2. RHINOCORT [Concomitant]
     Active Substance: BUDESONIDE
     Indication: HYPERSENSITIVITY
     Route: 065
  3. COMBIVENT [Suspect]
     Active Substance: ALBUTEROL SULFATE\IPRATROPIUM BROMIDE
     Indication: CHRONIC OBSTRUCTIVE PULMONARY DISEASE
     Dosage: 1 PUFF 4 TIMES DAILY
     Route: 065
     Dates: start: 2011
  4. HYDROCHLOROTHIAZIDE. [Concomitant]
     Active Substance: HYDROCHLOROTHIAZIDE
     Indication: HYPERTENSION
     Dosage: 12.5MG

REACTIONS (4)
  - Oxygen saturation decreased [Recovered/Resolved]
  - Drug ineffective [Unknown]
  - Product quality issue [Unknown]
  - Device malfunction [Unknown]

NARRATIVE: CASE EVENT DATE: 20210331
